FAERS Safety Report 19814691 (Version 1)
Quarter: 2021Q3

REPORT INFORMATION
  Report Type: Spontaneous
  Country: PL (occurrence: PL)
  Receive Date: 20210910
  Receipt Date: 20210910
  Transmission Date: 20211014
  Serious: Yes (Life-Threatening)
  Sender: FDA-Public Use
  Company Number: PL-PFIZER INC-202101142674

PATIENT
  Age: 60 Year
  Sex: Female
  Weight: 65 kg

DRUGS (1)
  1. ALPRAZOLAM. [Suspect]
     Active Substance: ALPRAZOLAM
     Dosage: 10 MG
     Route: 048
     Dates: start: 20210127, end: 20210127

REACTIONS (4)
  - Suicide attempt [Unknown]
  - Tearfulness [Unknown]
  - Toxicity to various agents [Unknown]
  - Somnolence [Unknown]

NARRATIVE: CASE EVENT DATE: 20210127
